FAERS Safety Report 8496583 (Version 3)
Quarter: 2013Q1

REPORT INFORMATION
  Report Type: Report from Study
  Country: BR (occurrence: BR)
  Receive Date: 20120405
  Receipt Date: 20130213
  Transmission Date: 20140127
  Serious: Yes (Hospitalization, Other)
  Sender: FDA-Public Use
  Company Number: BR-ABBOTT-12P-020-0920240-00

PATIENT
  Age: 61 None
  Sex: Female
  Weight: 66.5 kg

DRUGS (4)
  1. HUMIRA 40 MG/ 0.8 ML PRE-FILLED SYRINGE [Suspect]
     Indication: CROHN^S DISEASE
     Dosage: WEEK 0 - LOADING DOSE, 1 INJECTION
     Route: 058
     Dates: start: 20120322
  2. AZATHIOPRINE [Concomitant]
     Indication: CROHN^S DISEASE
     Dosage: IN THE MORNING
     Route: 048
     Dates: start: 20120322
  3. NATRILIX [Concomitant]
     Indication: BLOOD PRESSURE MANAGEMENT
     Dosage: AFTER BREAKFAST
     Route: 048
  4. LIPANON [Concomitant]
     Indication: BLOOD TRIGLYCERIDES
     Dosage: AFTER DINNER
     Route: 048

REACTIONS (6)
  - Nephritis [Unknown]
  - Renal disorder [Unknown]
  - Abdominal pain [Recovered/Resolved]
  - Nausea [Recovered/Resolved]
  - Hyperhidrosis [Recovered/Resolved]
  - Kidney infection [Unknown]
